FAERS Safety Report 8599308-8 (Version None)
Quarter: 2012Q3

REPORT INFORMATION
  Report Type: 
  Country: None (occurrence: None)
  Receive Date: 20120816
  Receipt Date: 20120606
  Transmission Date: 20120928
  Serious: No
  Sender: FDA-Public Use
  Company Number: US-AMGEN-USASP2010002347

PATIENT
  Age: 12 Year
  Sex: Female
  Weight: 55 kg

DRUGS (8)
  1. MAGNESIUM OXIDE [Concomitant]
  2. NEUPOGEN [Suspect]
     Indication: PRODUCT USED FOR UNKNOWN INDICATION
     Dosage: 480 MUG, UNK
     Dates: start: 20101004, end: 20120510
  3. ZEMPLAR [Concomitant]
  4. METRONIDAZOLE [Concomitant]
  5. FUROSEMIDE [Concomitant]
  6. ASPIRIN [Concomitant]
  7. AMLODIPINE [Concomitant]
  8. LOVENOX [Concomitant]

REACTIONS (1)
  - INJECTION SITE PAIN [None]
